FAERS Safety Report 7673083-3 (Version None)
Quarter: 2011Q3

REPORT INFORMATION
  Report Type: 
  Country: None (occurrence: None)
  Receive Date: 20110810
  Receipt Date: 20110803
  Transmission Date: 20111222
  Serious: Yes (Hospitalization)
  Sender: FDA-Public Use
  Company Number: CA-BIOGENIDEC-2011BI015290

PATIENT
  Age: 50 Year
  Sex: Female
  Weight: 81 kg

DRUGS (10)
  1. HYDROCHLOROTHIAZIDE [Concomitant]
     Indication: BLOOD PRESSURE
     Route: 048
  2. TYSABRI [Suspect]
     Indication: RELAPSING-REMITTING MULTIPLE SCLEROSIS
     Route: 042
     Dates: start: 20081027
  3. ATENOLOL [Concomitant]
     Indication: BLOOD PRESSURE
     Route: 048
  4. AVENTYL HYDROCHLORIDE [Concomitant]
     Indication: SLEEP DISORDER
     Route: 048
  5. CARBAMAZEPINE [Concomitant]
     Indication: PAIN
     Route: 048
  6. ALERTEC [Concomitant]
     Indication: FATIGUE
     Route: 048
  7. HYDROXYZINE HCL [Concomitant]
     Indication: BLOOD PRESSURE
     Route: 048
  8. TYLENOL W/ CODEINE NO. 3 [Concomitant]
     Indication: PAIN
  9. FLUOXETINE [Concomitant]
     Indication: DEPRESSION
     Route: 048
  10. DETROL LA [Concomitant]
     Indication: URINARY INCONTINENCE
     Route: 048

REACTIONS (3)
  - UPPER LIMB FRACTURE [None]
  - FALL [None]
  - POST PROCEDURAL INFECTION [None]
